FAERS Safety Report 18434491 (Version 1)
Quarter: 2020Q4

REPORT INFORMATION
  Report Type: Other
  Country: CA (occurrence: CA)
  Receive Date: 20201028
  Receipt Date: 20201028
  Transmission Date: 20210114
  Serious: Yes (Other)
  Sender: FDA-Public Use
  Company Number: CA-CELLTRION INC.-2020CA029482

PATIENT

DRUGS (18)
  1. FLONASE [Concomitant]
     Active Substance: FLUTICASONE PROPIONATE
  2. VITAMIN B [VITAMIN B NOS] [Concomitant]
  3. HYDROXYCHLOROQUINE [Concomitant]
     Active Substance: HYDROXYCHLOROQUINE
  4. MOMETASONE [Concomitant]
     Active Substance: MOMETASONE
  5. PREDNISONE. [Concomitant]
     Active Substance: PREDNISONE
  6. ATORVASTATIN [Concomitant]
     Active Substance: ATORVASTATIN
  7. RABEPRAZOLE [Concomitant]
     Active Substance: RABEPRAZOLE
  8. VITAMIN C [Concomitant]
     Active Substance: ASCORBIC ACID
  9. BENADRYL [Concomitant]
     Active Substance: DIPHENHYDRAMINE HYDROCHLORIDE
  10. CLOPIDOGREL [Concomitant]
     Active Substance: CLOPIDOGREL BISULFATE
  11. SYNTHROID [Concomitant]
     Active Substance: LEVOTHYROXINE SODIUM
  12. VALSARTAN. [Concomitant]
     Active Substance: VALSARTAN
  13. RITUXIMAB (UNKNOWN) [Suspect]
     Active Substance: RITUXIMAB
     Indication: RHEUMATOID ARTHRITIS
     Dosage: 1000 MG
     Route: 042
  14. IPRATROPIUM [Concomitant]
     Active Substance: IPRATROPIUM
  15. NIFEDIPINE. [Concomitant]
     Active Substance: NIFEDIPINE
  16. METHYLPREDNISOLONE SODIUM SUCCINATE. [Concomitant]
     Active Substance: METHYLPREDNISOLONE SODIUM SUCCINATE
  17. TAMSULOSIN [Concomitant]
     Active Substance: TAMSULOSIN
  18. TYLENOL [Concomitant]
     Active Substance: ACETAMINOPHEN

REACTIONS (1)
  - Transient ischaemic attack [Unknown]
